FAERS Safety Report 10494518 (Version 1)
Quarter: 2014Q4

REPORT INFORMATION
  Report Type: Spontaneous
  Country: US (occurrence: None)
  Receive Date: 20141002
  Receipt Date: 20141002
  Transmission Date: 20150528
  Serious: Yes (Hospitalization)
  Sender: FDA-Public Use
  Company Number: None

PATIENT
  Age: 78 Year
  Sex: Male

DRUGS (8)
  1. METOPROLOL [Concomitant]
     Active Substance: METOPROLOL
  2. CILOSTAZOL. [Concomitant]
     Active Substance: CILOSTAZOL
  3. ASPIRIN. [Concomitant]
     Active Substance: ASPIRIN
  4. COMBIVENT [Concomitant]
     Active Substance: ALBUTEROL SULFATE\IPRATROPIUM BROMIDE
  5. FINASTERIDE. [Concomitant]
     Active Substance: FINASTERIDE
  6. VARENICLINE [Suspect]
     Active Substance: VARENICLINE
     Indication: SMOKING CESSATION THERAPY
     Dosage: 0.5 MG QD DAYS 1-3?THEN BID DAYS 4-78 SEE DOSE OR AMOUTN ORAL
     Route: 048
     Dates: start: 20140708, end: 20140714
  7. TAMSULOSIN HCL [Concomitant]
     Active Substance: TAMSULOSIN
  8. SIMVASTATIN. [Concomitant]
     Active Substance: SIMVASTATIN

REACTIONS (7)
  - Decreased appetite [None]
  - Weight decreased [None]
  - Fatigue [None]
  - Constipation [None]
  - Abnormal dreams [None]
  - Nausea [None]
  - Chronic obstructive pulmonary disease [None]

NARRATIVE: CASE EVENT DATE: 20140915
